FAERS Safety Report 5089855-8 (Version None)
Quarter: 2006Q3

REPORT INFORMATION
  Report Type: 
  Country: None (occurrence: None)
  Receive Date: 20060828
  Receipt Date: 20060818
  Transmission Date: 20061208
  Serious: Yes (Hospitalization)
  Sender: FDA-Public Use
  Company Number: DE-BAYER-200611080BVD

PATIENT
  Sex: Female
  Weight: 54 kg

DRUGS (12)
  1. SORAFENIB [Suspect]
     Indication: METASTATIC RENAL CELL CARCINOMA
     Dosage: TOTAL DAILY DOSE: 800 MG  UNIT DOSE: 400 MG
     Route: 048
     Dates: start: 20060119, end: 20060814
  2. JODTHYROX [Concomitant]
     Indication: HYPOTHYROIDISM
     Route: 048
     Dates: start: 19750101
  3. NEXIUM [Concomitant]
     Indication: REFLUX OESOPHAGITIS
     Route: 048
     Dates: start: 20010101
  4. ARIMIDEX [Concomitant]
     Route: 048
     Dates: start: 20010101
  5. ZOLADEX [Concomitant]
     Route: 030
     Dates: start: 20010101
  6. IMODIUM AD [Concomitant]
     Indication: DIARRHOEA
     Route: 048
     Dates: start: 20060131
  7. OKOUBASAN D2 [Concomitant]
     Route: 048
     Dates: start: 20060320
  8. KEVATRIL [Concomitant]
     Indication: VOMITING
     Route: 048
     Dates: start: 20060530
  9. DEXTROSE 5% [Concomitant]
     Route: 042
     Dates: start: 20060713
  10. RINGER [Concomitant]
     Route: 042
     Dates: start: 20060713
  11. TPN [Concomitant]
     Route: 042
     Dates: start: 20060713
  12. FREKAVIT [Concomitant]
     Route: 042
     Dates: start: 20060713

REACTIONS (2)
  - ALVEOLITIS [None]
  - PNEUMONIA [None]
